FAERS Safety Report 25758016 (Version 2)
Quarter: 2025Q4

REPORT INFORMATION
  Report Type: Report from Study
  Country: US (occurrence: US)
  Receive Date: 20250903
  Receipt Date: 20251118
  Transmission Date: 20260118
  Serious: Yes (Hospitalization, Other)
  Sender: ABBVIE
  Company Number: US-ABBVIE-6442630

PATIENT
  Sex: Male

DRUGS (30)
  1. HUMIRA [Suspect]
     Active Substance: ADALIMUMAB
     Indication: Rheumatoid arthritis
     Dosage: INJECT 0.4 ML (40 MG TOTAL) UNDER THE SKIN EVERY 14 DAYS.
     Route: 058
  2. HUMIRA [Suspect]
     Active Substance: ADALIMUMAB
     Dosage: INJECT 0.4 ML (40 MG TOTAL) UNDER THE SKIN EVERY 14 DAYS.
     Route: 058
  3. ACETAMINOPHEN [Concomitant]
     Active Substance: ACETAMINOPHEN
     Indication: Product used for unknown indication
     Dosage: AS NEEDED. 1:02 AM
     Route: 048
     Dates: start: 20250607
  4. ACETAMINOPHEN [Concomitant]
     Active Substance: ACETAMINOPHEN
     Indication: Product used for unknown indication
     Dosage: 325 MG TABLET TAKE 1 TABLET (325 MG TOTAL) BY MOUTH AS NEEDED.
     Route: 048
  5. ASPIRIN [Concomitant]
     Active Substance: ASPIRIN
     Indication: Product used for unknown indication
     Dosage: ENTERIC COATED TABLET TAKE 1 TABLET (81 MG TOTAL) BY MOUTH ONCE DAILY IN MORNING.
     Route: 048
  6. ASPIRIN [Concomitant]
     Active Substance: ASPIRIN
     Indication: Product used for unknown indication
     Dosage: ENTERIC COATED TABLET TAKE 1 TABLET (81 MG TOTAL) BY MOUTH ONCE DAILY IN MORNING.
     Route: 048
     Dates: start: 20250608
  7. LIPITOR [Concomitant]
     Active Substance: ATORVASTATIN CALCIUM
     Indication: Product used for unknown indication
     Dosage: TAKE 1 TABLET (40 MG TOTAL) BY MOUTH AT BEDTIME.
     Route: 048
  8. LIPITOR [Concomitant]
     Active Substance: ATORVASTATIN CALCIUM
     Indication: Product used for unknown indication
     Dosage: 9:46 PM BEDTIME
     Route: 048
     Dates: start: 20250607
  9. PLAVIX [Concomitant]
     Active Substance: CLOPIDOGREL BISULFATE
     Indication: Product used for unknown indication
     Dosage: 75 MG TABLET TAKE 1 TABLET (75 MG TOTAL) BY MOUTH DAILY.
     Route: 048
  10. PLAVIX [Concomitant]
     Active Substance: CLOPIDOGREL BISULFATE
     Indication: Product used for unknown indication
     Dosage: 75 MG TABLET TAKE 1 TABLET (75 MG TOTAL) BY MOUTH DAILY.
     Route: 048
     Dates: start: 20250608
  11. FLEXERIL [Concomitant]
     Active Substance: CYCLOBENZAPRINE HYDROCHLORIDE
     Indication: Product used for unknown indication
     Dosage: 10 MG TABLET TAKE 1 TABLET (10 MG TOTAL) BY MOUTH AS NEEDED.
     Route: 048
  12. FLEXERIL [Concomitant]
     Active Substance: CYCLOBENZAPRINE HYDROCHLORIDE
     Indication: Product used for unknown indication
     Dosage: 10 MG TABLET TAKE 1 TABLET (10 MG TOTAL) BY MOUTH AS NEEDED. 8:39 PM
     Route: 048
     Dates: start: 20250625
  13. PROSCAR [Concomitant]
     Active Substance: FINASTERIDE
     Indication: Product used for unknown indication
     Dosage: 5 MG TABLET TAKE 1 TABLET (5 MG TOTAL) BY MOUTH ONCE DAILY.
     Route: 048
  14. PROSCAR [Concomitant]
     Active Substance: FINASTERIDE
     Indication: Product used for unknown indication
     Dosage: 5 MG TABLET TAKE 1 TABLET (5 MG TOTAL) BY MOUTH ONCE DAILY.?9:53 AM MORNING
     Route: 048
     Dates: start: 20250608
  15. FOLVITE [Concomitant]
     Active Substance: FOLIC ACID
     Indication: Product used for unknown indication
     Dosage: 1 MG TABLET TAKE 1 TABLET (1 MG TOTAL) BY MOUTH ONCE DAILY.
     Route: 048
  16. FOLVITE [Concomitant]
     Active Substance: FOLIC ACID
     Indication: Product used for unknown indication
     Dosage: 1 MG TABLET TAKE 1 TABLET (1 MG TOTAL) BY MOUTH ONCE DAILY. ?9:53 AM
     Route: 048
     Dates: start: 20250608
  17. APRESOLINE HYDROCHLORIDE [Concomitant]
     Active Substance: HYDRALAZINE HYDROCHLORIDE
     Indication: Blood pressure measurement
     Dosage: TIME INTERVAL: 0.33333333 DAYS: 25 MG TABLET TAKE 1 TABLET (25 MG TOTAL) BY MOUTH 3 TIMES A DAY. ...
     Route: 048
  18. APRESOLINE HYDROCHLORIDE [Concomitant]
     Active Substance: HYDRALAZINE HYDROCHLORIDE
     Indication: Blood pressure measurement
     Route: 048
     Dates: start: 20250608
  19. IRON [Concomitant]
     Active Substance: IRON
     Indication: Product used for unknown indication
     Dosage: TAKE 325 MG BY MOUTH ONCE DAILY.
     Route: 048
  20. IRON [Concomitant]
     Active Substance: IRON
     Indication: Product used for unknown indication
     Dosage: 9.53 AM?TAKE 325 MG BY MOUTH ONCE DAILY.
     Route: 048
     Dates: start: 20250608
  21. COZAAR [Concomitant]
     Active Substance: LOSARTAN POTASSIUM
     Indication: Blood pressure measurement
     Dosage: 50 MG TABLET TAKE 1 TABLET (50 MG TOTAL) BY MOUTH ONCE DAILY. ?LAST TIME THIS WAS GIVEN: 50 MG ON...
     Route: 048
  22. COZAAR [Concomitant]
     Active Substance: LOSARTAN POTASSIUM
     Indication: Blood pressure measurement
     Dosage: 50 MG TABLET TAKE 1 TABLET (50 MG TOTAL) BY MOUTH ONCE DAILY.
     Route: 048
     Dates: start: 20251112
  23. COZAAR [Concomitant]
     Active Substance: LOSARTAN POTASSIUM
     Indication: Blood pressure measurement
     Dosage: 50 MG TABLET TAKE 1 TABLET (50 MG TOTAL) BY MOUTH ONCE DAILY. ?10:09 AM
     Route: 048
     Dates: start: 20250608
  24. METHOTREXATE [Concomitant]
     Active Substance: METHOTREXATE
     Indication: Product used for unknown indication
     Dosage: 2.5 MG TABLET TAKE 7 TABLETS (17.5 MG TOTAL) BY MOUTH EVERY 7 DAYS.
     Route: 048
  25. FLOMAX [Concomitant]
     Active Substance: TAMSULOSIN HYDROCHLORIDE
     Indication: Product used for unknown indication
     Dosage: 0.4 MG CAPSULE TAKE 1 CAPSULE (0.4 MG TOTAL) BY MOUTH ONCE DAILY.
     Route: 048
  26. FLOMAX [Concomitant]
     Active Substance: TAMSULOSIN HYDROCHLORIDE
     Indication: Product used for unknown indication
     Dosage: 0.4 MG CAPSULE TAKE 1 CAPSULE (0.4 MG TOTAL) BY MOUTH ONCE DAILY.
     Route: 048
     Dates: start: 20251111
  27. FLOMAX [Concomitant]
     Active Substance: TAMSULOSIN HYDROCHLORIDE
     Indication: Product used for unknown indication
     Dosage: 0.4 MG CAPSULE TAKE 1 CAPSULE (0.4 MG TOTAL) BY MOUTH ONCE DAILY. ?9:46 PM
     Route: 048
     Dates: start: 20250607
  28. KENALOG [Concomitant]
     Active Substance: TRIAMCINOLONE ACETONIDE
     Indication: Product used for unknown indication
     Dosage: 0.025 % CREAM  APPLY 1 APPLICATION TOPICALLY 2 TIMES A DAY AS NEEDED.
     Route: 061
  29. INFLUENZA VIRUS VACCINE [Concomitant]
     Active Substance: INFLUENZA VIRUS VACCINE
     Indication: Product used for unknown indication
  30. Covid-19 vaccine [Concomitant]
     Indication: Product used for unknown indication

REACTIONS (2)
  - Angina pectoris [Recovered/Resolved]
  - Chest pain [Recovered/Resolved]
